FAERS Safety Report 15396711 (Version 2)
Quarter: 2018Q3

REPORT INFORMATION
  Report Type: Spontaneous
  Country: US (occurrence: US)
  Receive Date: 20180918
  Receipt Date: 20180926
  Transmission Date: 20181010
  Serious: No
  Sender: FDA-Public Use
  Company Number: US-TEVA-2018-US-955465

PATIENT
  Sex: Female

DRUGS (1)
  1. CLONAZEPAM. [Suspect]
     Active Substance: CLONAZEPAM
     Route: 065

REACTIONS (6)
  - Feeling abnormal [Unknown]
  - Migraine [Unknown]
  - Drug ineffective [Unknown]
  - Vertigo [Unknown]
  - Dyspnoea [Unknown]
  - Drug withdrawal syndrome [Unknown]
